FAERS Safety Report 9413320 (Version 1)
Quarter: 2013Q2

REPORT INFORMATION
  Report Type: Spontaneous
  Country: JP (occurrence: JP)
  Receive Date: 20130603
  Receipt Date: 20130603
  Transmission Date: 20140414
  Serious: Yes (Hospitalization, Other)
  Sender: FDA-Public Use
  Company Number: DSA_53182_2012

PATIENT
  Age: 72 Year
  Sex: Male

DRUGS (26)
  1. 5-FU [Suspect]
     Indication: RECTAL CANCER
     Dosage: DOSAGE ADMINISTERED EVERY CYCLE.
     Route: 041
     Dates: start: 20080523, end: 20080930
  2. OXALIPLATIN [Suspect]
     Dosage: DOSAGE ADMINISTERED EVERY CYCLE.
     Route: 041
     Dates: start: 20080523, end: 20080819
  3. CALCIUM LEVOFOLINATE [Suspect]
     Dosage: DOSAGE ADMINISTERED EVERY CYCLE.
     Route: 041
     Dates: start: 20080523, end: 20080930
  4. GRANISETRON (GRANISETRON)(GRANISETRON) [Concomitant]
  5. DEXART (DEXAMETHASONE SODIUM PHOSPHATE)(DEXAMETHASONE SODIUM PHOSPHATE) [Concomitant]
  6. THYRADIN S (LEVOTHYROXINE SODIUM)(LEVOTHYROXINE SODIUM) [Concomitant]
  7. ALFAROL (ALFACALCIDOL)(ALFACALCIDOL) [Concomitant]
  8. CALCIUM LACTATE (CALCIUM LACTATE)(CALCIUM LACTATE) [Concomitant]
  9. BESACOLIN (BETHANECHOL CHLORIDE)(BETHANECHOL CHLORIDE) [Concomitant]
  10. LOXONIN (LOXOPROFEN SODIUM)(LOXOPROFEN SODIUM) [Concomitant]
  11. MUCOSTA (REBAMIPIDE)(REBAMIPIDE) [Concomitant]
  12. FERROUS FUMARATE (FERROUS FUMARATE)(FERROUS FUMARATE) [Concomitant]
  13. BIFIDOBACTERIUM BIFIDUM/ENTEROCCOCCUS FAECIUM (BIFIDOBACTERIUM NOS)(BIFIDOBACTERIUM NOS) [Concomitant]
  14. RENIVACE (ENALAPRIL MALEATE)(ENALAPRIL MALEATE) [Concomitant]
  15. MAGLAX (MAGNESIUM OXIDE)(MAGNESIUM OXIDE) [Concomitant]
  16. NIFEDIPINE (NIFEDIPINE)(NIFEDIPINE) [Concomitant]
  17. SEPAMIT (NIFEDIPINE)(NIFEDIPINE) [Concomitant]
  18. SOLU-MEDROL (METHYLPREDNISOLONE SODIUM SUCCINATE)(METHYLPREDNISOLONE SODIUM SUCCINATE) [Concomitant]
  19. LASIX (FUROSEMIDE)(FUROSEMIDE) [Concomitant]
  20. BAKTAR (BCTRIM)(SULFAMETHOXAZOLE, TRIMETHOPRIM) [Concomitant]
  21. PARIET (RABEPRAZOLE SODIUM)(RABEPRAZOLE SODIUM) [Concomitant]
  22. MAXIPIME (CEFEPIME HYDROCHLORIDE)(CEFEPIME HYDROCHLORIDE) [Concomitant]
  23. PREDONINE (PREDNISOLONE)(PREDNISOLONE) [Concomitant]
  24. HEPARIN SODIUM [Suspect]
  25. DECADRON (DEXAMETHASONE)(DEXAMETHASONE) [Concomitant]
  26. AVISHOT (NAFTOPIDIL)(NAFTOPIDIL) [Concomitant]

REACTIONS (9)
  - Condition aggravated [None]
  - General physical health deterioration [None]
  - Interstitial lung disease [None]
  - Pulmonary embolism [None]
  - Neuropathy peripheral [None]
  - Activities of daily living impaired [None]
  - Oedema peripheral [None]
  - Venous thrombosis [None]
  - Dyspnoea exertional [None]
